FAERS Safety Report 10087548 (Version 1)
Quarter: 2014Q2

REPORT INFORMATION
  Report Type: Spontaneous
  Country: US (occurrence: US)
  Receive Date: 20140418
  Receipt Date: 20140418
  Transmission Date: 20141212
  Serious: No
  Sender: FDA-Public Use
  Company Number: US-PURDUE-USA-2013-0108622

PATIENT
  Age: 86 Year
  Sex: Female

DRUGS (3)
  1. OXYCODONE HCL CR TABLETS (SIMILAR TO NDA 22-272) [Suspect]
     Indication: PRODUCT USED FOR UNKNOWN INDICATION
     Route: 048
  2. COLACE CAPSULES [Concomitant]
     Indication: CONSTIPATION
     Dosage: 2 TABLET, DAILY
     Route: 048
  3. MIRALAX                            /00754501/ [Concomitant]
     Indication: CONSTIPATION
     Dosage: EVERY OTHER DAY
     Route: 048

REACTIONS (2)
  - Faecaloma [Unknown]
  - Constipation [Unknown]
